FAERS Safety Report 6198573-4 (Version None)
Quarter: 2009Q2

REPORT INFORMATION
  Report Type: 
  Country: None (occurrence: None)
  Receive Date: 20090521
  Receipt Date: 20090520
  Transmission Date: 20091009
  Serious: No
  Sender: FDA-Public Use
  Company Number: US-B.I. PHARMACEUTICALS,INC./RIDGEFIELD-2009-BP-05630BP

PATIENT
  Sex: Female
  Weight: 127.01 kg

DRUGS (17)
  1. COMBIVENT [Suspect]
     Indication: CHRONIC OBSTRUCTIVE PULMONARY DISEASE
     Dosage: 4PUF
     Route: 055
     Dates: start: 20080901, end: 20090501
  2. COMBIVENT [Suspect]
     Indication: ASTHMA
  3. OXYGEN [Concomitant]
     Indication: SLEEP APNOEA SYNDROME
     Route: 055
  4. INDERAL [Concomitant]
     Indication: HEART RATE IRREGULAR
     Route: 048
  5. INDERAL [Concomitant]
     Indication: FAMILIAL TREMOR
  6. PREMARIN [Concomitant]
     Indication: MENOPAUSE
     Route: 048
  7. ATROBAN HCL [Concomitant]
     Indication: HEART RATE IRREGULAR
     Route: 048
  8. NITROFUR MAC [Concomitant]
     Indication: CYSTITIS
     Route: 048
  9. GAVISCON [Concomitant]
  10. ZANTAC [Concomitant]
  11. NEXIUM [Concomitant]
     Indication: GASTROOESOPHAGEAL REFLUX DISEASE
  12. POTASSIUM CHLORIDE [Concomitant]
  13. FLONASE [Concomitant]
  14. FLOVENT [Concomitant]
  15. MAXAIR [Concomitant]
  16. NEBULIZER [Concomitant]
     Route: 061
  17. ANTECOUD HCL [Concomitant]

REACTIONS (7)
  - COUGH [None]
  - DRY THROAT [None]
  - DYSPHAGIA [None]
  - DYSPHONIA [None]
  - HEADACHE [None]
  - NAUSEA [None]
  - TRACHEAL INFLAMMATION [None]
